FAERS Safety Report 7954975 (Version 4)
Quarter: 2012Q4

REPORT INFORMATION
  Report Type: 
  Country: US (occurrence: US)
  Receive Date: 20110523
  Receipt Date: 20121019
  Transmission Date: 20130627
  Serious: Yes (Hospitalization, Other)
  Sender: FDA-Public Use
  Company Number: US-ELI_LILLY_AND_COMPANY-US201105002996

PATIENT
  Age: 22 Year
  Sex: Male

DRUGS (23)
  1. ZYPREXA [Suspect]
     Indication: PSYCHOTIC DISORDER
     Dosage: 15 mg, qd
     Route: 048
     Dates: start: 20030422, end: 20100304
  2. ZYPREXA [Suspect]
     Dosage: 10 mg, bid
  3. ZYPREXA [Suspect]
     Dosage: 12.5 mg, qd
  4. ZYPREXA [Suspect]
     Dosage: 10 mg, qd
  5. ZYPREXA [Suspect]
     Dosage: 20 mg, qd
  6. ZYPREXA [Suspect]
     Dosage: 5 mg, bid
  7. ZYPREXA [Suspect]
     Dosage: 25 mg, qd
     Dates: end: 20100304
  8. ABILIFY [Concomitant]
  9. CLONAZEPAM [Concomitant]
     Dosage: UNK
  10. IMIPRAMINE [Concomitant]
  11. TOPAMAX [Concomitant]
     Dosage: UNK
  12. LAMICTAL [Concomitant]
  13. LORAZEPAM [Concomitant]
  14. VALIUM [Concomitant]
  15. ATIVAN [Concomitant]
  16. XANAX [Concomitant]
  17. LOTREL [Concomitant]
  18. AMLODIPINE [Concomitant]
  19. LISINOPRIL [Concomitant]
  20. TOPROL [Concomitant]
  21. ENABLEX                            /01760401/ [Concomitant]
  22. DITROPAN [Concomitant]
  23. LEXAPRO [Concomitant]
     Indication: ANXIETY
     Dosage: 10 mg, each evening
     Route: 048

REACTIONS (21)
  - Paraplegia [Unknown]
  - Mental status changes [Recovered/Resolved]
  - Hemiparesis [Recovering/Resolving]
  - Urinary tract infection [Recovered/Resolved]
  - Decubitus ulcer [Unknown]
  - White blood cell count increased [Unknown]
  - Rhabdomyolysis [Recovering/Resolving]
  - Complex partial seizures [Recovering/Resolving]
  - Convulsion [Unknown]
  - Transient ischaemic attack [Unknown]
  - Muscle rigidity [Unknown]
  - Oliguria [Unknown]
  - Myopathy [Unknown]
  - Haematochezia [Unknown]
  - Haemorrhoids [Unknown]
  - Iron deficiency anaemia [Unknown]
  - Alanine aminotransferase increased [Unknown]
  - Aspartate aminotransferase increased [Unknown]
  - Urinary incontinence [Unknown]
  - Weight increased [Unknown]
  - Prescribed overdose [Recovered/Resolved]
